FAERS Safety Report 20161153 (Version 1)
Quarter: 2021Q4

REPORT INFORMATION
  Report Type: Spontaneous
  Country: US (occurrence: None)
  Receive Date: 20211207
  Receipt Date: 20211207
  Transmission Date: 20220303
  Serious: Yes (Other)
  Sender: FDA-Public Use
  Company Number: None

PATIENT
  Age: 54 Year
  Sex: Female
  Weight: 66.4 kg

DRUGS (2)
  1. PACLITAXEL [Suspect]
     Active Substance: PACLITAXEL
     Indication: Breast cancer female
     Dosage: FREQUENCY : ONCE;?
     Route: 041
     Dates: start: 20211207, end: 20211207
  2. PEMBROLIZUMAB [Concomitant]
     Active Substance: PEMBROLIZUMAB
     Dates: start: 20211207

REACTIONS (11)
  - Feeling abnormal [None]
  - Back pain [None]
  - Dizziness [None]
  - Blood pressure decreased [None]
  - Oxygen saturation decreased [None]
  - Blood pressure systolic increased [None]
  - Flushing [None]
  - Nausea [None]
  - Dyspnoea [None]
  - Infusion related reaction [None]
  - Therapy interrupted [None]

NARRATIVE: CASE EVENT DATE: 20211207
